FAERS Safety Report 25386478 (Version 1)
Quarter: 2025Q2

REPORT INFORMATION
  Report Type: Spontaneous
  Country: ES (occurrence: None)
  Receive Date: 20250602
  Receipt Date: 20250602
  Transmission Date: 20250716
  Serious: Yes (Other)
  Sender: INCYTE
  Company Number: ES-Accord-404394

PATIENT
  Age: 84 Year

DRUGS (2)
  1. TAFASITAMAB [Suspect]
     Active Substance: TAFASITAMAB
     Indication: Diffuse large B-cell lymphoma
     Route: 065
  2. LENALIDOMIDE [Suspect]
     Active Substance: LENALIDOMIDE
     Indication: Diffuse large B-cell lymphoma
     Route: 065

REACTIONS (5)
  - Melaena [Unknown]
  - Pulmonary embolism [Unknown]
  - Diffuse large B-cell lymphoma [Unknown]
  - Toxicity to various agents [Unknown]
  - Disease progression [Unknown]
